FAERS Safety Report 8801134 (Version 1)
Quarter: 2012Q4

REPORT INFORMATION
  Report Type: 
  Country: DE (occurrence: DE)
  Receive Date: 20120921
  Receipt Date: 20120921
  Transmission Date: 20130627
  Serious: Yes (Other)
  Sender: FDA-Public Use
  Company Number: DE-VIIV HEALTHCARE LIMITED-D0076791A

PATIENT
  Age: 39 Year
  Sex: Male

DRUGS (4)
  1. KIVEXA [Suspect]
     Indication: HIV INFECTION
     Route: 048
     Dates: start: 20120403, end: 20120814
  2. PREZISTA [Suspect]
     Indication: HIV INFECTION
     Dosage: 400MG per day
     Route: 065
     Dates: start: 20120403, end: 20120604
  3. NORVIR [Concomitant]
     Dosage: 100MG per day
     Route: 065
     Dates: start: 20120403, end: 20120604
  4. ISENTRESS [Concomitant]
     Dosage: 400MG Twice per day
     Route: 065
     Dates: start: 20120710

REACTIONS (3)
  - Immune reconstitution inflammatory syndrome [Unknown]
  - Rash [Unknown]
  - Pruritus [Unknown]
